FAERS Safety Report 25917867 (Version 1)
Quarter: 2025Q4

REPORT INFORMATION
  Report Type: Report from Study
  Country: CA (occurrence: CA)
  Receive Date: 20251014
  Receipt Date: 20251014
  Transmission Date: 20260119
  Serious: Yes (Other)
  Sender: TAKEDA
  Company Number: CA-TAKEDA-2025TUS088482

PATIENT
  Age: 77 Year
  Sex: Female

DRUGS (6)
  1. VEDOLIZUMAB [Suspect]
     Active Substance: VEDOLIZUMAB
     Indication: Colitis ulcerative
     Dosage: 300 MILLIGRAM
  2. Cortiment [Concomitant]
     Dosage: UNK
  3. BUDESONIDE [Concomitant]
     Active Substance: BUDESONIDE
     Dosage: UNK
  4. ENTOCORT [Concomitant]
     Active Substance: BUDESONIDE
     Dosage: UNK
  5. DONEPEZIL [Concomitant]
     Active Substance: DONEPEZIL
     Indication: Blood cholesterol
     Dosage: UNK
  6. ALENDRONATE [Concomitant]
     Active Substance: ALENDRONATE SODIUM
     Indication: Osteoporosis
     Dosage: UNK

REACTIONS (2)
  - Haematochezia [Unknown]
  - Frequent bowel movements [Unknown]
